FAERS Safety Report 26195972 (Version 1)
Quarter: 2025Q4

REPORT INFORMATION
  Report Type: Report from Study
  Country: US (occurrence: US)
  Receive Date: 20251224
  Receipt Date: 20251224
  Transmission Date: 20260118
  Serious: Yes (Other)
  Sender: ABBVIE
  Company Number: US-ABBVIE-6600539

PATIENT
  Age: 44 Year
  Sex: Male

DRUGS (1)
  1. CREON [Suspect]
     Active Substance: PANCRELIPASE AMYLASE\PANCRELIPASE LIPASE\PANCRELIPASE PROTEASE
     Indication: Gallbladder operation
     Route: 048
     Dates: start: 20000101

REACTIONS (8)
  - Bile duct stent insertion [Not Recovered/Not Resolved]
  - Bile duct stent insertion [Recovered/Resolved]
  - Pancreatic stent placement [Recovered/Resolved]
  - Cholecystectomy [Unknown]
  - Pancreatic stent placement [Not Recovered/Not Resolved]
  - Blood alkaline phosphatase increased [Recovered/Resolved]
  - Weight decreased [Not Recovered/Not Resolved]
  - Product administration error [Unknown]

NARRATIVE: CASE EVENT DATE: 20020101
